FAERS Safety Report 14192038 (Version 3)
Quarter: 2017Q4

REPORT INFORMATION
  Report Type: Report from Study
  Country: None (occurrence: HU)
  Receive Date: 20171115
  Receipt Date: 20171206
  Transmission Date: 20180321
  Serious: Yes (Death, Life-Threatening, Hospitalization, Other)
  Sender: FDA-Public Use
  Company Number: HU-ABBVIE-17K-076-2163244-00

PATIENT
  Age: 67 Year
  Sex: Female
  Weight: 74 kg

DRUGS (9)
  1. METFOGAMMA [Concomitant]
     Active Substance: METFORMIN HYDROCHLORIDE
     Indication: DIABETES MELLITUS
  2. DUODOPA [Suspect]
     Active Substance: CARBIDOPA\LEVODOPA
     Indication: PARKINSON^S DISEASE
     Dosage: MD: 9.1 ML, CD: 3.8 ML/HR, ED: 1 ML, 16 HR THERAPY
     Route: 050
     Dates: start: 20160920, end: 20160923
  3. DUODOPA [Suspect]
     Active Substance: CARBIDOPA\LEVODOPA
     Dosage: MORNING DOSE 9.5ML; CONTINUOUS DOSE 3.7ML/H;EXTRA DOSE 1.5ML
     Route: 050
     Dates: start: 20161128, end: 20171113
  4. FUROSEMIDE. [Concomitant]
     Active Substance: FUROSEMIDE
     Indication: CARDIAC FAILURE
     Route: 051
     Dates: start: 20171109, end: 20171112
  5. METOPROLOL Z HEXAL [Concomitant]
     Active Substance: METOPROLOL SUCCINATE
     Indication: TACHYCARDIA
     Dates: start: 2003
  6. MADOPAR [Concomitant]
     Active Substance: BENSERAZIDE HYDROCHLORIDE\LEVODOPA
     Indication: PARKINSON^S DISEASE
     Dosage: 100/25MG
     Dates: start: 2014
  7. REQUIP [Concomitant]
     Active Substance: ROPINIROLE HYDROCHLORIDE
     Indication: PARKINSON^S DISEASE
  8. PRADAXA [Concomitant]
     Active Substance: DABIGATRAN ETEXILATE MESYLATE
     Indication: PROPHYLAXIS
     Dates: start: 2015
  9. QUAMATEL [Concomitant]
     Active Substance: FAMOTIDINE
     Indication: PROPHYLAXIS

REACTIONS (3)
  - Cardiac arrest [Fatal]
  - Hypokinesia [Fatal]
  - Hydrothorax [Fatal]

NARRATIVE: CASE EVENT DATE: 2017
